FAERS Safety Report 7672178-8 (Version None)
Quarter: 2011Q3

REPORT INFORMATION
  Report Type: 
  Country: None (occurrence: None)
  Receive Date: 20110809
  Receipt Date: 20110804
  Transmission Date: 20111222
  Serious: Yes (Death, Hospitalization, Other)
  Sender: FDA-Public Use
  Company Number: PHHY2011FR46998

PATIENT
  Sex: Male

DRUGS (9)
  1. GLEEVEC [Suspect]
     Indication: GASTROINTESTINAL STROMAL TUMOUR
     Dosage: 400 MG, QD
     Route: 048
     Dates: start: 20110121, end: 20110223
  2. LASIX [Concomitant]
  3. AMIODARONE HCL [Concomitant]
  4. ENALAPRIL MALEATE [Concomitant]
  5. PRAVASTATIN [Concomitant]
  6. GLEEVEC [Suspect]
     Dosage: 200 MG, BID
     Route: 048
     Dates: start: 20110223, end: 20110428
  7. ALLOPURINOL [Concomitant]
  8. ASPIRIN [Concomitant]
  9. PREVISCAN [Concomitant]

REACTIONS (10)
  - RENAL FAILURE ACUTE [None]
  - CARDIAC FAILURE [None]
  - CARDIAC FAILURE CONGESTIVE [None]
  - BRONCHIAL OBSTRUCTION [None]
  - PULMONARY FIBROSIS [None]
  - EMPHYSEMA [None]
  - RESPIRATORY FAILURE [None]
  - PULMONARY OEDEMA [None]
  - CARDIOMEGALY [None]
  - PLEURAL EFFUSION [None]
